FAERS Safety Report 9613432 (Version 2)
Quarter: 2013Q4

REPORT INFORMATION
  Report Type: Spontaneous
  Country: JP (occurrence: None)
  Receive Date: 20131008
  Receipt Date: 20131126
  Transmission Date: 20140711
  Serious: Yes (Hospitalization)
  Sender: FDA-Public Use
  Company Number: ABR_01158_2013

PATIENT
  Age: 55 Year
  Sex: Male
  Weight: 72 kg

DRUGS (2)
  1. GLIADEL [Suspect]
     Indication: MALIGNANT GLIOMA
     Dosage: 61.6 MG 1X INTRACEREBRAL
     Dates: start: 20130228, end: 20130228
  2. TEMODAL [Concomitant]

REACTIONS (7)
  - Pyrexia [None]
  - Altered state of consciousness [None]
  - Brain oedema [None]
  - Dysstasia [None]
  - Gait disturbance [None]
  - Condition aggravated [None]
  - Somnolence [None]
